FAERS Safety Report 14593034 (Version 1)
Quarter: 2018Q1

REPORT INFORMATION
  Report Type: Spontaneous
  Country: FR (occurrence: FR)
  Receive Date: 20180302
  Receipt Date: 20180302
  Transmission Date: 20180509
  Serious: Yes (Hospitalization, Other)
  Sender: FDA-Public Use
  Company Number: FR-SA-2018SA045545

PATIENT
  Age: 36 Year
  Sex: Female
  Weight: 70 kg

DRUGS (32)
  1. PABAL [Concomitant]
     Active Substance: CARBETOCIN
     Route: 065
     Dates: start: 20170608, end: 20170608
  2. AZANTAC [Concomitant]
     Active Substance: RANITIDINE HYDROCHLORIDE
     Route: 065
     Dates: start: 20170608, end: 20170608
  3. DEXAMETHASONE. [Concomitant]
     Active Substance: DEXAMETHASONE
     Route: 065
     Dates: start: 20170608, end: 20170608
  4. ZOPHREN [Concomitant]
     Active Substance: ONDANSETRON
     Route: 065
     Dates: start: 20170608, end: 20170608
  5. SYNTOCINON [Concomitant]
     Active Substance: OXYTOCIN
     Route: 065
     Dates: start: 20170607, end: 20170608
  6. MORPHINE [Concomitant]
     Active Substance: MORPHINE
     Route: 065
     Dates: start: 20170608, end: 20170608
  7. INSULIN LISPRO [Suspect]
     Active Substance: INSULIN LISPRO
     Indication: TYPE 1 DIABETES MELLITUS
     Route: 058
     Dates: start: 20130101
  8. DOLIPRANE [Concomitant]
     Active Substance: ACETAMINOPHEN
     Route: 065
     Dates: start: 20170608, end: 20170708
  9. GYNEFAM [Concomitant]
     Route: 065
     Dates: start: 20170110, end: 20170216
  10. CEFAZOLINE [Concomitant]
     Active Substance: CEFAZOLIN SODIUM
     Route: 065
     Dates: start: 20170608, end: 20170608
  11. PARACETAMOL [Concomitant]
     Active Substance: ACETAMINOPHEN
     Route: 065
     Dates: start: 20170605, end: 20170605
  12. EPHEDRINE. [Concomitant]
     Active Substance: EPHEDRINE
     Route: 065
     Dates: start: 20170607, end: 20170608
  13. INSULIN LISPRO [Suspect]
     Active Substance: INSULIN LISPRO
     Indication: TYPE 1 DIABETES MELLITUS
     Route: 058
  14. MOPRAL [Concomitant]
     Active Substance: OMEPRAZOLE
     Route: 065
     Dates: start: 20170530, end: 20170605
  15. TIMOFEROL [Concomitant]
     Active Substance: ASCORBIC ACID\FERROUS SULFATE
     Route: 065
     Dates: start: 20170110, end: 20170605
  16. ASPIRIN. [Concomitant]
     Active Substance: ASPIRIN
     Route: 065
     Dates: start: 20161114, end: 20170516
  17. INSULIN LISPRO [Suspect]
     Active Substance: INSULIN LISPRO
     Indication: TYPE 1 DIABETES MELLITUS
     Route: 058
  18. INFLUENZA VACCINE [Concomitant]
     Active Substance: INFLUENZA VIRUS VACCINE
     Route: 065
     Dates: start: 20160101, end: 20160101
  19. SPECIAFOLDINE [Concomitant]
     Active Substance: FOLIC ACID
     Route: 065
     Dates: start: 20161114, end: 20161213
  20. LIDOCAINE ADRENALINE AGUETTANT [Concomitant]
     Active Substance: EPINEPHRINE\LIDOCAINE
     Route: 065
     Dates: start: 20170607, end: 20170608
  21. TARDYFERON B(9) [Concomitant]
     Active Substance: FERROUS SULFATE\FOLIC ACID
     Route: 065
     Dates: start: 20170608, end: 20170708
  22. UVEDOSE [Concomitant]
     Active Substance: CHOLECALCIFEROL
     Route: 065
     Dates: start: 20170217, end: 20170217
  23. SPASFON [Concomitant]
     Active Substance: PHLOROGLUCINOL\1,3,5-TRIMETHOXYBENZENE
     Route: 065
     Dates: start: 20170605, end: 20170605
  24. ACUPAN [Concomitant]
     Active Substance: NEFOPAM HYDROCHLORIDE
     Route: 065
     Dates: start: 20170608, end: 20170610
  25. KETOPROFENE [Concomitant]
     Active Substance: KETOPROFEN
     Route: 065
     Dates: start: 20170608, end: 20170613
  26. LACTATED RINGERS SOLUTION [Concomitant]
     Active Substance: CALCIUM CHLORIDE\POTASSIUM CHLORIDE\SODIUM CHLORIDE\SODIUM LACTATE
     Route: 065
     Dates: start: 20170607, end: 20170608
  27. GLUCOSE [Concomitant]
     Active Substance: DEXTROSE
     Route: 065
     Dates: start: 20170607, end: 20170608
  28. LOVENOX [Concomitant]
     Active Substance: ENOXAPARIN SODIUM
     Route: 065
     Dates: start: 20170608, end: 20170623
  29. PROPESS [Concomitant]
     Active Substance: DINOPROSTONE
     Route: 065
     Dates: start: 20170606, end: 20170607
  30. INSULIN LISPRO [Suspect]
     Active Substance: INSULIN LISPRO
     Indication: TYPE 1 DIABETES MELLITUS
     Route: 058
  31. SUFENTA [Concomitant]
     Active Substance: SUFENTANIL CITRATE
     Route: 065
     Dates: start: 20170607, end: 20170608
  32. DIPROSONE [Concomitant]
     Active Substance: BETAMETHASONE DIPROPIONATE
     Route: 065
     Dates: start: 20170101, end: 20170601

REACTIONS (7)
  - Maternal exposure during breast feeding [Unknown]
  - Failed induction of labour [Recovered/Resolved]
  - Maternal exposure during pregnancy [Unknown]
  - Hypoglycaemia [Recovered/Resolved]
  - Diabetes mellitus inadequate control [Recovered/Resolved]
  - Diabetic retinopathy [Not Recovered/Not Resolved]
  - Diabetes mellitus inadequate control [Recovered/Resolved]

NARRATIVE: CASE EVENT DATE: 20161201
